FAERS Safety Report 4336218-6 (Version None)
Quarter: 2004Q2

REPORT INFORMATION
  Report Type: 
  Country: None (occurrence: None)
  Receive Date: 20040406
  Receipt Date: 20040324
  Transmission Date: 20050107
  Serious: No
  Sender: FDA-Public Use
  Company Number: 2004-UK-00239UK

PATIENT
  Sex: Male

DRUGS (5)
  1. SPIRIVA [Suspect]
     Indication: CHRONIC OBSTRUCTIVE AIRWAYS DISEASE
     Dosage: 1 CAPSULE TWICE A DAY (NR, TWICE DAILY); PO
     Route: 048
     Dates: start: 20040225, end: 20040308
  2. DICLOFENAC POTASSIUM [Concomitant]
  3. LANSOPRAZOLE [Concomitant]
  4. PENICILLIN [Concomitant]
  5. SALBUTAMOL (SALBUTAMOL) [Concomitant]

REACTIONS (3)
  - APHONIA [None]
  - DIARRHOEA [None]
  - PHARYNGOLARYNGEAL PAIN [None]
